FAERS Safety Report 4931654-9 (Version None)
Quarter: 2006Q1

REPORT INFORMATION
  Report Type: 
  Country: None (occurrence: None)
  Receive Date: 20060303
  Receipt Date: 20051212
  Transmission Date: 20060701
  Serious: No
  Sender: FDA-Public Use
  Company Number: US-BRISTOL-MYERS SQUIBB COMPANY-13212485

PATIENT
  Age: 68 Year
  Sex: Male
  Weight: 80 kg

DRUGS (9)
  1. ERBITUX [Suspect]
     Indication: COLON CANCER
     Route: 042
     Dates: start: 20051001, end: 20051001
  2. IRINOTECAN HCL [Concomitant]
     Route: 042
     Dates: start: 20051001, end: 20051001
  3. BENADRYL [Concomitant]
     Indication: PREMEDICATION
     Route: 042
  4. ANZEMET [Concomitant]
     Indication: PREMEDICATION
     Route: 042
  5. DECADRON SRC [Concomitant]
     Indication: PREMEDICATION
     Route: 042
  6. ATROPINE [Concomitant]
     Indication: PREMEDICATION
     Route: 042
  7. COUMADIN [Concomitant]
  8. TOPROL [Concomitant]
  9. PRILOSEC [Concomitant]

REACTIONS (6)
  - DERMATITIS ACNEIFORM [None]
  - DRY EYE [None]
  - EYE IRRITATION [None]
  - EYE PAIN [None]
  - EYELID PTOSIS [None]
  - OCULAR HYPERAEMIA [None]
